FAERS Safety Report 5346333-6 (Version None)
Quarter: 2007Q2

REPORT INFORMATION
  Report Type: 
  Country: None (occurrence: None)
  Receive Date: 20070605
  Receipt Date: 20070524
  Transmission Date: 20071010
  Serious: Yes (Hospitalization)
  Sender: FDA-Public Use
  Company Number: JP-PFIZER INC-2007042849

PATIENT
  Age: 79 Year
  Sex: Female

DRUGS (7)
  1. AZULFIDINE EN-TABS [Suspect]
     Indication: RHEUMATOID ARTHRITIS
     Dosage: DAILY DOSE:1000MG
     Route: 048
     Dates: start: 20070420, end: 20070504
  2. RIMATIL [Suspect]
     Indication: RHEUMATOID ARTHRITIS
     Dosage: DAILY DOSE:200MG
     Route: 048
     Dates: start: 20070420, end: 20070504
  3. ALENDRONATE SODIUM [Concomitant]
     Route: 048
  4. GLAKAY [Concomitant]
     Route: 048
  5. GASTER [Concomitant]
     Route: 048
  6. MUCOSTA [Concomitant]
     Route: 048
  7. THYRADIN [Concomitant]
     Route: 048

REACTIONS (5)
  - DECREASED APPETITE [None]
  - ERYTHEMA [None]
  - LIVER DISORDER [None]
  - MALAISE [None]
  - PYREXIA [None]
